FAERS Safety Report 6199401-3 (Version None)
Quarter: 2009Q2

REPORT INFORMATION
  Report Type: 
  Country: None (occurrence: None)
  Receive Date: 20090522
  Receipt Date: 20090512
  Transmission Date: 20091009
  Serious: Yes (Hospitalization, Other)
  Sender: FDA-Public Use
  Company Number: US-JNJFOC-20070803309

PATIENT
  Sex: Female
  Weight: 73.48 kg

DRUGS (6)
  1. REMICADE [Suspect]
     Route: 042
  2. REMICADE [Suspect]
     Dosage: POSSIBLY HAD 1 MORE DOSE APR-2007
     Route: 042
  3. REMICADE [Suspect]
     Route: 042
  4. REMICADE [Suspect]
     Indication: CROHN'S DISEASE
     Route: 042
  5. MERCAPTOPURINE [Concomitant]
  6. MESALAMINE [Concomitant]

REACTIONS (5)
  - BRONCHITIS [None]
  - CONVULSION [None]
  - CROHN'S DISEASE [None]
  - RESPIRATORY TRACT INFECTION [None]
  - REVERSIBLE POSTERIOR LEUKOENCEPHALOPATHY SYNDROME [None]
